FAERS Safety Report 14311552 (Version 3)
Quarter: 2018Q1

REPORT INFORMATION
  Report Type: Spontaneous
  Country: JP (occurrence: JP)
  Receive Date: 20171221
  Receipt Date: 20180308
  Transmission Date: 20180509
  Serious: Yes (Other)
  Sender: FDA-Public Use
  Company Number: JP-CONCORDIA PHARMACEUTICALS INC.-E2B_00008883

PATIENT
  Age: 38 Year
  Sex: Male

DRUGS (7)
  1. WARFARIN [Suspect]
     Active Substance: WARFARIN
  2. PREDNISOLONE. [Suspect]
     Active Substance: PREDNISOLONE
     Indication: NEPHROTIC SYNDROME
     Route: 048
  3. CALCIUM CARBONATE. [Suspect]
     Active Substance: CALCIUM CARBONATE
     Indication: HYPERPHOSPHATAEMIA
  4. LANSOPRAZOLE. [Concomitant]
     Active Substance: LANSOPRAZOLE
  5. FUROSEMIDE. [Concomitant]
     Active Substance: FUROSEMIDE
  6. CICLOSPORIN [Concomitant]
     Active Substance: CYCLOSPORINE
     Dosage: FOR 2 WEEKS AND FIVE SESSION
     Route: 048
  7. MIZORIBINE [Concomitant]
     Active Substance: MIZORIBINE
     Route: 048

REACTIONS (2)
  - Calciphylaxis [Recovered/Resolved]
  - N-telopeptide urine increased [Recovered/Resolved]
